FAERS Safety Report 4796785-5 (Version None)
Quarter: 2005Q3

REPORT INFORMATION
  Report Type: 
  Country: None (occurrence: None)
  Receive Date: 20050916
  Receipt Date: 20050404
  Transmission Date: 20060218
  Serious: Yes (Other)
  Sender: FDA-Public Use
  Company Number: US-JNJFOC-20050401521

PATIENT
  Sex: Female

DRUGS (1)
  1. TOPAMAX [Suspect]
     Indication: DRUG USE FOR UNKNOWN INDICATION
     Dosage: OTHER
     Dates: start: 20020601, end: 20020801

REACTIONS (4)
  - GRAND MAL CONVULSION [None]
  - RASH GENERALISED [None]
  - RASH PRURITIC [None]
  - WEIGHT INCREASED [None]
